FAERS Safety Report 5141489-2 (Version None)
Quarter: 2006Q4

REPORT INFORMATION
  Report Type: 
  Country: None (occurrence: None)
  Receive Date: 20061101
  Receipt Date: 20061026
  Transmission Date: 20070319
  Serious: Yes (Hospitalization)
  Sender: FDA-Public Use
  Company Number: GB-MERCK-0610GBR00495

PATIENT
  Age: 82 Year
  Sex: Male

DRUGS (1)
  1. TIMOPTIC [Suspect]
     Route: 047

REACTIONS (2)
  - BRADYCARDIA [None]
  - RESPIRATORY DISORDER [None]
